FAERS Safety Report 8397044-4 (Version None)
Quarter: 2012Q2

REPORT INFORMATION
  Report Type: 
  Country: None (occurrence: None)
  Receive Date: 20120530
  Receipt Date: 20120521
  Transmission Date: 20120825
  Serious: Yes (Other)
  Sender: FDA-Public Use
  Company Number: PR-ABBOTT-12P-131-0932303-00

PATIENT
  Sex: Female
  Weight: 72.64 kg

DRUGS (7)
  1. LIPITOR [Concomitant]
     Indication: HYPERTRIGLYCERIDAEMIA
  2. 4 LIFE [Concomitant]
     Indication: PRODUCT USED FOR UNKNOWN INDICATION
     Route: 048
  3. UNKNOWN MEDICATION [Concomitant]
     Indication: HYPERTENSION
     Route: 048
  4. LOVAZA [Concomitant]
     Indication: HYPERCHOLESTEROLAEMIA
     Route: 048
  5. LOVAZA [Concomitant]
     Indication: HYPERTRIGLYCERIDAEMIA
  6. HUMIRA [Suspect]
     Indication: PSORIASIS
     Route: 058
     Dates: start: 20110101, end: 20120515
  7. LIPITOR [Concomitant]
     Indication: HYPERCHOLESTEROLAEMIA
     Route: 048

REACTIONS (1)
  - TUBERCULIN TEST POSITIVE [None]
